FAERS Safety Report 5217599-8 (Version None)
Quarter: 2007Q1

REPORT INFORMATION
  Report Type: 
  Country: None (occurrence: None)
  Receive Date: 20070124
  Receipt Date: 20060426
  Transmission Date: 20070707
  Serious: No
  Sender: FDA-Public Use
  Company Number: US-GLAXOSMITHKLINE-A0603666A

PATIENT
  Sex: Female

DRUGS (1)
  1. PAXIL CR [Suspect]
     Indication: DEPRESSION
     Dosage: 12.5MG SEE DOSAGE TEXT
     Route: 048
     Dates: start: 20051101

REACTIONS (3)
  - DEPRESSION [None]
  - FATIGUE [None]
  - WEIGHT INCREASED [None]
